FAERS Safety Report 8696889 (Version 2)
Quarter: 2012Q4

REPORT INFORMATION
  Report Type: 
  Country: BR (occurrence: BR)
  Receive Date: 20120801
  Receipt Date: 20120921
  Transmission Date: 20130627
  Serious: Yes (Other)
  Sender: FDA-Public Use
  Company Number: BR-AMGEN-BRASP2012047766

PATIENT
  Age: 53 Year
  Sex: Female
  Weight: 85 kg

DRUGS (5)
  1. ENBREL [Suspect]
     Indication: PSORIASIS
     Dosage: 50 mg, 2x/week
     Route: 058
     Dates: start: 201105, end: 201205
  2. ENBREL [Suspect]
     Dosage: UNK
     Route: 058
     Dates: end: 201204
  3. ARADOIS [Concomitant]
     Indication: HYPERTENSION
     Dosage: 2 units of 50mg in the morning and 1 unit at night
  4. CLOBETASOL [Concomitant]
     Dosage: UNK
  5. COCONUT OIL [Concomitant]
     Indication: PUSTULAR PSORIASIS
     Dosage: UNK

REACTIONS (4)
  - Depression [Recovering/Resolving]
  - Gait disturbance [Unknown]
  - Limb injury [Not Recovered/Not Resolved]
  - Drug ineffective [Unknown]
